FAERS Safety Report 5223371-5 (Version None)
Quarter: 2007Q1

REPORT INFORMATION
  Report Type: 
  Country: None (occurrence: None)
  Receive Date: 20061201
  Receipt Date: 20060809
  Transmission Date: 20070707
  Serious: No
  Sender: FDA-Public Use
  Company Number: 2006PV016619

PATIENT
  Age: 78 Year
  Sex: Female

DRUGS (4)
  1. BYETTA [Suspect]
     Indication: DIABETES MELLITUS NON-INSULIN-DEPENDENT
     Dosage: 10 MCG;BID;SC : 5MCG;BID;SC
     Route: 058
     Dates: start: 20060324, end: 20060422
  2. BYETTA [Suspect]
     Indication: DIABETES MELLITUS NON-INSULIN-DEPENDENT
     Dosage: 10 MCG;BID;SC : 5MCG;BID;SC
     Route: 058
     Dates: start: 20060423
  3. HUMULIN 70/30 [Concomitant]
  4. HUMULIN N [Concomitant]

REACTIONS (5)
  - DECREASED APPETITE [None]
  - DYSPEPSIA [None]
  - MICTURITION URGENCY [None]
  - POLLAKIURIA [None]
  - WEIGHT DECREASED [None]
